FAERS Safety Report 4959158-8 (Version None)
Quarter: 2006Q1

REPORT INFORMATION
  Report Type: 
  Country: None (occurrence: None)
  Receive Date: 20060331
  Receipt Date: 20060317
  Transmission Date: 20060701
  Serious: Yes (Hospitalization)
  Sender: FDA-Public Use
  Company Number: 2006CG00529

PATIENT
  Age: 26581 Day
  Sex: Male

DRUGS (3)
  1. ROSUVASTATIN [Suspect]
     Indication: ACUTE CORONARY SYNDROME
     Route: 048
     Dates: start: 20060301, end: 20060301
  2. RISORDAN [Concomitant]
     Indication: ACUTE CORONARY SYNDROME
     Route: 042
     Dates: start: 20060307, end: 20060308
  3. LOVENOX [Concomitant]
     Indication: ACUTE CORONARY SYNDROME
     Route: 058
     Dates: start: 20060307

REACTIONS (1)
  - CYTOLYTIC HEPATITIS [None]
